FAERS Safety Report 7531935-9 (Version None)
Quarter: 2011Q2

REPORT INFORMATION
  Report Type: 
  Country: None (occurrence: None)
  Receive Date: 20110607
  Receipt Date: 20110607
  Transmission Date: 20111010
  Serious: Yes (Hospitalization)
  Sender: FDA-Public Use
  Company Number: None

PATIENT
  Age: 61 Year
  Sex: Male
  Weight: 74 kg

DRUGS (2)
  1. OMEPRAZOLE [Suspect]
     Indication: RENAL FAILURE CHRONIC
     Dosage: 20 MG EVERY DAY PO
     Route: 048
     Dates: start: 20110301, end: 20110324
  2. OMEPRAZOLE [Suspect]
     Indication: GASTROOESOPHAGEAL REFLUX DISEASE
     Dosage: 20 MG EVERY DAY PO
     Route: 048
     Dates: start: 20110301, end: 20110324

REACTIONS (3)
  - NEPHRITIS [None]
  - RENAL FAILURE ACUTE [None]
  - URINARY TRACT INFECTION [None]
